FAERS Safety Report 8962355 (Version 2)
Quarter: 2013Q3

REPORT INFORMATION
  Report Type: Spontaneous
  Country: US (occurrence: None)
  Receive Date: 20120820
  Receipt Date: 20130815
  Transmission Date: 20140515
  Serious: Yes (Hospitalization, Other)
  Sender: FDA-Public Use
  Company Number: ADR-2012-01414

PATIENT
  Sex: Male

DRUGS (3)
  1. BACLOFEN INTRATHECAL (BACLOFEN INJECTION) [Suspect]
     Indication: NEUROPATHY PERIPHERAL
  2. BACLOFEN INTRATHECAL (BACLOFEN INJECTION) [Suspect]
     Indication: PAIN
  3. DILAUDID (HYDROMORPHONE) [Concomitant]

REACTIONS (14)
  - Drug withdrawal syndrome [None]
  - Infection [None]
  - Tooth abscess [None]
  - Pain [None]
  - Muscle spasms [None]
  - Arthritis [None]
  - Neuropathy peripheral [None]
  - Diabetes mellitus [None]
  - Treatment noncompliance [None]
  - Inadequate analgesia [None]
  - Malaise [None]
  - Overdose [None]
  - Neuropathy peripheral [None]
  - Psychotic disorder [None]
